FAERS Safety Report 12600270 (Version 3)
Quarter: 2016Q3

REPORT INFORMATION
  Report Type: Spontaneous
  Country: DK (occurrence: DK)
  Receive Date: 20160727
  Receipt Date: 20160804
  Transmission Date: 20161109
  Serious: Yes (Hospitalization)
  Sender: FDA-Public Use
  Company Number: DK-TEVA-679213ISR

PATIENT
  Age: 73 Year
  Sex: Female

DRUGS (2)
  1. MYCOPHENOLATE MOFETIL. [Suspect]
     Active Substance: MYCOPHENOLATE MOFETIL
     Indication: PYODERMA GANGRENOSUM
     Route: 065
  2. INFLIXIMAB [Suspect]
     Active Substance: INFLIXIMAB
     Indication: PYODERMA GANGRENOSUM
     Dosage: 400MG TWO OCCASIONS 14 DAYS APART
     Route: 042

REACTIONS (4)
  - Ophthalmoplegia [Unknown]
  - Infection reactivation [Unknown]
  - Orbital apex syndrome [Unknown]
  - Varicella zoster virus infection [Unknown]
